FAERS Safety Report 7277732-3 (Version None)
Quarter: 2011Q1

REPORT INFORMATION
  Report Type: 
  Country: None (occurrence: None)
  Receive Date: 20110207
  Receipt Date: 20110125
  Transmission Date: 20110831
  Serious: Yes (Hospitalization, Other)
  Sender: FDA-Public Use
  Company Number: US-PFIZER INC-2010085418

PATIENT
  Sex: Male

DRUGS (2)
  1. DILANTIN [Suspect]
     Indication: CONVULSION
     Dosage: 30 MG, 2X/DAY
     Route: 048
  2. DILANTIN [Suspect]
     Dosage: 60 MG, EVERY BED TIME
     Dates: start: 20090801, end: 20090911

REACTIONS (1)
  - STEVENS-JOHNSON SYNDROME [None]
